FAERS Safety Report 13908950 (Version 1)
Quarter: 2017Q3

REPORT INFORMATION
  Report Type: Spontaneous
  Country: US (occurrence: US)
  Receive Date: 20170828
  Receipt Date: 20170828
  Transmission Date: 20171127
  Serious: Yes (Hospitalization)
  Sender: FDA-Public Use
  Company Number: US-TORRENT-00003299

PATIENT
  Age: 19 Year
  Sex: Male

DRUGS (1)
  1. BUPROPION HYDROCHLORIDE. [Suspect]
     Active Substance: BUPROPION HYDROCHLORIDE

REACTIONS (8)
  - Intentional overdose [Unknown]
  - Electrocardiogram QT prolonged [Unknown]
  - Toxicity to various agents [Unknown]
  - Electrocardiogram QRS complex prolonged [Unknown]
  - Urinary incontinence [Unknown]
  - Clonic convulsion [Unknown]
  - Unresponsive to stimuli [Unknown]
  - Sinus tachycardia [Unknown]
